FAERS Safety Report 13323651 (Version 2)
Quarter: 2017Q2

REPORT INFORMATION
  Report Type: Spontaneous
  Country: US (occurrence: US)
  Receive Date: 20170310
  Receipt Date: 20170630
  Transmission Date: 20170830
  Serious: No
  Sender: FDA-Public Use
  Company Number: US-PFIZER INC-2017094261

PATIENT
  Sex: Female

DRUGS (1)
  1. XELJANZ XR [Suspect]
     Active Substance: TOFACITINIB CITRATE
     Indication: RHEUMATOID ARTHRITIS
     Dosage: 11 MG, 1X/DAY

REACTIONS (14)
  - Condition aggravated [Unknown]
  - Nodule [Unknown]
  - Joint hyperextension [Unknown]
  - Productive cough [Unknown]
  - C-reactive protein increased [Unknown]
  - Joint range of motion decreased [Unknown]
  - Arthralgia [Unknown]
  - Feeling hot [Unknown]
  - Joint dislocation [Unknown]
  - Musculoskeletal stiffness [Unknown]
  - Intentional product misuse [Unknown]
  - Hand deformity [Unknown]
  - Upper respiratory tract infection [Unknown]
  - Headache [Unknown]
